FAERS Safety Report 20235234 (Version 1)
Quarter: 2021Q4

REPORT INFORMATION
  Report Type: Spontaneous
  Country: US (occurrence: US)
  Receive Date: 20211228
  Receipt Date: 20211228
  Transmission Date: 20220303
  Serious: No
  Sender: FDA-Public Use
  Company Number: US-ASTELLAS-2021US046262

PATIENT
  Sex: Female

DRUGS (1)
  1. PADCEV [Suspect]
     Active Substance: ENFORTUMAB VEDOTIN-EJFV
     Indication: Neoplasm
     Dosage: 1.25 MG/KG, UNKNOWN FREQ. (2 DOSE ON DAY 1 AND DAY 8)
     Route: 065
     Dates: start: 202108, end: 2021

REACTIONS (3)
  - Anxiety [Unknown]
  - Pruritus [Unknown]
  - Rash [Unknown]

NARRATIVE: CASE EVENT DATE: 20210101
